FAERS Safety Report 23771678 (Version 4)
Quarter: 2024Q4

REPORT INFORMATION
  Report Type: Spontaneous
  Country: US (occurrence: US)
  Receive Date: 20240423
  Receipt Date: 20241118
  Transmission Date: 20250115
  Serious: No
  Sender: NOVARTIS
  Company Number: US-002147023-NVSC2024US082318

PATIENT
  Sex: Male

DRUGS (4)
  1. PROMACTA [Suspect]
     Active Substance: ELTROMBOPAG OLAMINE
     Indication: Immune thrombocytopenia
     Dosage: 25 MG
     Route: 048
     Dates: start: 202403
  2. PROMACTA [Suspect]
     Active Substance: ELTROMBOPAG OLAMINE
     Dosage: 75 MG, QD
     Route: 048
     Dates: start: 202403
  3. CAPECITABINE [Concomitant]
     Active Substance: CAPECITABINE
     Indication: Product used for unknown indication
     Dosage: UNK
     Route: 065
  4. NIVESTYM [Concomitant]
     Active Substance: FILGRASTIM-AAFI
     Indication: Product used for unknown indication
     Dosage: UNK (10X0.5MI)
     Route: 065

REACTIONS (12)
  - Skin laceration [Unknown]
  - Pain [Unknown]
  - Pruritus [Unknown]
  - Palmar-plantar erythrodysaesthesia syndrome [Unknown]
  - Erythema [Unknown]
  - Blister [Unknown]
  - Skin hyperpigmentation [Unknown]
  - Groin infection [Unknown]
  - Sleep disorder [Unknown]
  - Bone pain [Unknown]
  - Fatigue [Unknown]
  - Somnolence [Unknown]
